FAERS Safety Report 4678839-7 (Version None)
Quarter: 2005Q2

REPORT INFORMATION
  Report Type: 
  Country: None (occurrence: None)
  Receive Date: 20050531
  Receipt Date: 20050525
  Transmission Date: 20051028
  Serious: Yes (Death, Hospitalization)
  Sender: FDA-Public Use
  Company Number: 163-20785-05040060

PATIENT
  Age: 83 Year
  Sex: Female

DRUGS (1)
  1. THALOMID [Suspect]
     Indication: MULTIPLE MYELOMA
     Dosage: 100 MG TWICE DAILY, ORAL
     Route: 048
     Dates: start: 20041229, end: 20050404

REACTIONS (5)
  - ATRIAL FIBRILLATION [None]
  - DISEASE PROGRESSION [None]
  - KIDNEY INFECTION [None]
  - MULTIPLE MYELOMA [None]
  - URINARY TRACT INFECTION [None]
